FAERS Safety Report 5143306-3 (Version None)
Quarter: 2006Q4

REPORT INFORMATION
  Report Type: 
  Country: None (occurrence: None)
  Receive Date: 20061030
  Receipt Date: 20061016
  Transmission Date: 20070319
  Serious: Yes (Other)
  Sender: FDA-Public Use
  Company Number: 2006127957

PATIENT
  Age: 55 Year
  Sex: Male
  Weight: 88.4514 kg

DRUGS (8)
  1. SUTENT [Suspect]
     Indication: RENAL CELL CARCINOMA STAGE UNSPECIFIED
     Dosage: 50 MG (50 MG, 1 IN 1 D)
     Dates: start: 20060701
  2. VITAMIN C (VITAMIN C) [Concomitant]
  3. VITAMIN A (NATURAL) CAP [Concomitant]
  4. ACETAMINOPHEN [Concomitant]
  5. COUMADIN [Concomitant]
  6. DEXAMETHASONE TAB [Concomitant]
  7. POTASSIUM (POTASSIUM) [Concomitant]
  8. SUDAFED 12 HOUR [Concomitant]

REACTIONS (5)
  - BLOOD CREATININE INCREASED [None]
  - BLOOD UREA INCREASED [None]
  - EYE IRRITATION [None]
  - EYE SWELLING [None]
  - SWELLING FACE [None]
